FAERS Safety Report 24570364 (Version 1)
Quarter: 2024Q4

REPORT INFORMATION
  Report Type: Spontaneous
  Country: JP (occurrence: JP)
  Receive Date: 20241031
  Receipt Date: 20241031
  Transmission Date: 20250115
  Serious: Yes (Hospitalization)
  Sender: EISAI
  Company Number: JP-Eisai-202409538_PRT_P_1

PATIENT
  Age: 62 Year
  Sex: Female

DRUGS (2)
  1. RABEPRAZOLE SODIUM [Suspect]
     Active Substance: RABEPRAZOLE SODIUM
     Indication: Renal cyst infection
     Dosage: DOSE UNKNOWN
     Route: 048
  2. RABEPRAZOLE SODIUM [Suspect]
     Active Substance: RABEPRAZOLE SODIUM
     Indication: Congenital cystic kidney disease

REACTIONS (2)
  - Pyrexia [Recovering/Resolving]
  - Drug eruption [Recovering/Resolving]
